FAERS Safety Report 10736523 (Version 1)
Quarter: 2015Q1

REPORT INFORMATION
  Report Type: Spontaneous
  Country: FR (occurrence: FR)
  Receive Date: 20150126
  Receipt Date: 20150126
  Transmission Date: 20150721
  Serious: Yes (Other)
  Sender: FDA-Public Use
  Company Number: FR-NOVOPROD-426212

PATIENT
  Age: 73 Year
  Sex: Female
  Weight: 86 kg

DRUGS (11)
  1. STAGID [Concomitant]
     Active Substance: METFORMIN PAMOATE
     Dosage: 3 DF DAILY
     Route: 048
     Dates: start: 2008
  2. BISOPROLOL                         /00802602/ [Concomitant]
     Dosage: 10/25 (1 DF DAILY)
     Route: 048
  3. BETASERC                           /00141801/ [Concomitant]
     Dosage: (1 DF DAILY)
     Route: 048
     Dates: start: 2010
  4. OMEPRAZOLE. [Concomitant]
     Active Substance: OMEPRAZOLE
     Dosage: 20 (1 DF)
     Route: 048
     Dates: start: 2012
  5. APROVEL [Concomitant]
     Active Substance: IRBESARTAN
     Dosage: 300 (1 DF)
     Route: 048
     Dates: start: 2005
  6. ALLOPURINOL. [Concomitant]
     Active Substance: ALLOPURINOL
     Dosage: UNK
     Route: 048
     Dates: start: 2000
  7. LANTUS [Concomitant]
     Active Substance: INSULIN GLARGINE
     Dosage: 10 IU, QD
     Route: 065
     Dates: start: 201409
  8. VICTOZA [Suspect]
     Active Substance: LIRAGLUTIDE
     Indication: TYPE 2 DIABETES MELLITUS
     Dosage: 1.2 MG, QD
     Route: 065
     Dates: start: 2010, end: 201501
  9. NOVOMIX [Concomitant]
     Active Substance: INSULIN ASPART
     Indication: TYPE 2 DIABETES MELLITUS
     Dosage: UNK
     Route: 065
  10. LASILIX                            /00032601/ [Concomitant]
     Active Substance: FUROSEMIDE
     Dosage: 20 (1 DF DAILY)
     Route: 048
     Dates: start: 2014
  11. ATORVASTATINE                      /01326101/ [Concomitant]
     Dosage: 40 (1 DF DAILY
     Route: 065
     Dates: start: 2000

REACTIONS (1)
  - Intraductal papillary-mucinous carcinoma of pancreas [Recovering/Resolving]

NARRATIVE: CASE EVENT DATE: 2014
